FAERS Safety Report 24730834 (Version 1)
Quarter: 2024Q4

REPORT INFORMATION
  Report Type: Spontaneous
  Country: US (occurrence: US)
  Receive Date: 20241213
  Receipt Date: 20241213
  Transmission Date: 20250115
  Serious: Yes (Other)
  Sender: SANOFI AVENTIS
  Company Number: US-SA-2024SA366134

PATIENT
  Sex: Male
  Weight: 85.45 kg

DRUGS (2)
  1. DUPIXENT [Suspect]
     Active Substance: DUPILUMAB
     Indication: Dermatitis atopic
     Dosage: 300 MG, QOW
     Route: 058
  2. BIMZELX [Concomitant]
     Active Substance: BIMEKIZUMAB-BKZX
     Dosage: UNK

REACTIONS (4)
  - Suicidal ideation [Unknown]
  - Pain [Unknown]
  - Psoriasis [Unknown]
  - Drug ineffective [Unknown]
